FAERS Safety Report 9410284 (Version 1)
Quarter: 2013Q3

REPORT INFORMATION
  Report Type: Spontaneous
  Country: US (occurrence: US)
  Receive Date: 20130719
  Receipt Date: 20130719
  Transmission Date: 20140515
  Serious: No
  Sender: FDA-Public Use
  Company Number: US-PFIZER INC-2013212247

PATIENT
  Sex: Female

DRUGS (2)
  1. LYRICA [Suspect]
     Indication: DIABETIC NEUROPATHY
     Dosage: 500 MG, 1X/DAY
     Route: 048
     Dates: start: 2010
  2. LYRICA [Suspect]
     Indication: FIBROMYALGIA

REACTIONS (1)
  - Sinusitis [Unknown]
